FAERS Safety Report 16326306 (Version 2)
Quarter: 2019Q3

REPORT INFORMATION
  Report Type: Spontaneous
  Country: US (occurrence: US)
  Receive Date: 20190517
  Receipt Date: 20190918
  Transmission Date: 20191004
  Serious: Yes (Hospitalization, Disabling)
  Sender: FDA-Public Use
  Company Number: US-JNJFOC-20190521757

PATIENT
  Age: 65 Year
  Sex: Male

DRUGS (1)
  1. INVOKANA [Suspect]
     Active Substance: CANAGLIFLOZIN
     Indication: TYPE 2 DIABETES MELLITUS
     Dosage: IN MORNING
     Route: 048
     Dates: start: 201403, end: 201808

REACTIONS (5)
  - Impaired healing [Unknown]
  - Gangrene [Unknown]
  - Osteomyelitis [Unknown]
  - Limb amputation [Unknown]
  - Diabetic foot infection [Recovering/Resolving]

NARRATIVE: CASE EVENT DATE: 201805
